FAERS Safety Report 6373677-1 (Version None)
Quarter: 2009Q3

REPORT INFORMATION
  Report Type: 
  Country: None (occurrence: None)
  Receive Date: 20090924
  Receipt Date: 20090505
  Transmission Date: 20100115
  Serious: Yes (Other)
  Sender: FDA-Public Use
  Company Number: US-ASTRAZENECA-2009UW11439

PATIENT
  Age: 20 Year
  Sex: Male

DRUGS (7)
  1. SEROQUEL [Suspect]
     Dosage: 600MG
     Route: 048
     Dates: start: 20080201
  2. SEROQUEL [Suspect]
     Dosage: 500MG
     Route: 048
  3. SEROQUEL [Suspect]
     Dosage: 400MG
     Route: 048
  4. LITHIUM [Concomitant]
  5. LAMICTAL [Concomitant]
  6. COGENTIN [Concomitant]
  7. ABILIFY [Concomitant]

REACTIONS (2)
  - AKATHISIA [None]
  - TARDIVE DYSKINESIA [None]
